FAERS Safety Report 9310289 (Version 2)
Quarter: 2013Q3

REPORT INFORMATION
  Report Type: Spontaneous
  Country: JP (occurrence: JP)
  Receive Date: 20130527
  Receipt Date: 20130820
  Transmission Date: 20140515
  Serious: Yes (Other)
  Sender: FDA-Public Use
  Company Number: JP-PFIZER INC-2013159878

PATIENT
  Age: 74 Year
  Sex: Female

DRUGS (1)
  1. LYRICA [Suspect]
     Indication: LUMBAR SPINAL STENOSIS
     Dosage: 300 MG/DAY
     Route: 048
     Dates: start: 20110223

REACTIONS (4)
  - Off label use [Not Recovered/Not Resolved]
  - Candida infection [Unknown]
  - Pruritus genital [Recovered/Resolved]
  - Rash macular [Recovered/Resolved]
